FAERS Safety Report 11211182 (Version 1)
Quarter: 2015Q2

REPORT INFORMATION
  Report Type: Spontaneous
  Country: US (occurrence: None)
  Receive Date: 20150619
  Receipt Date: 20150619
  Transmission Date: 20150821
  Serious: Yes (Other)
  Sender: FDA-Public Use
  Company Number: None

PATIENT
  Age: 51 Year
  Sex: Female

DRUGS (1)
  1. HUMIRA [Suspect]
     Active Substance: ADALIMUMAB
     Indication: CROHN^S DISEASE
     Dosage: Q2W\ CROHN^S STARTER DOSE
     Dates: start: 201503

REACTIONS (2)
  - Night sweats [None]
  - Abdominal pain upper [None]

NARRATIVE: CASE EVENT DATE: 20150325
